FAERS Safety Report 6902213-3 (Version None)
Quarter: 2010Q3

REPORT INFORMATION
  Report Type: 
  Country: None (occurrence: None)
  Receive Date: 20100803
  Receipt Date: 20080502
  Transmission Date: 20110219
  Serious: No
  Sender: FDA-Public Use
  Company Number: US-PFIZER INC-2008039369

PATIENT
  Sex: Female

DRUGS (10)
  1. LYRICA [Suspect]
     Indication: COMPLEX REGIONAL PAIN SYNDROME
     Dates: start: 20051201
  2. NEURONTIN [Suspect]
     Indication: COMPLEX REGIONAL PAIN SYNDROME
     Dates: start: 20040101
  3. GABITRIL [Concomitant]
  4. TOPAMAX [Concomitant]
  5. CYMBALTA [Concomitant]
  6. ZONEGRAN [Concomitant]
     Dates: start: 20040101
  7. TEGRETOL [Concomitant]
     Dates: start: 20040101
  8. FLEXERIL [Concomitant]
  9. RESTORIL [Concomitant]
  10. NORCO [Concomitant]

REACTIONS (1)
  - WEIGHT INCREASED [None]
